FAERS Safety Report 19441753 (Version 1)
Quarter: 2021Q2

REPORT INFORMATION
  Report Type: Spontaneous
  Country: US (occurrence: US)
  Receive Date: 20210618
  Receipt Date: 20210618
  Transmission Date: 20210717
  Serious: Yes (Hospitalization)
  Sender: FDA-Public Use
  Company Number: None

PATIENT
  Age: 15 Year
  Sex: Female

DRUGS (1)
  1. LAMOTRIGINE. [Suspect]
     Active Substance: LAMOTRIGINE

REACTIONS (5)
  - Pyrexia [None]
  - Tachycardia [None]
  - Rash [None]
  - White blood cell count decreased [None]
  - Decreased appetite [None]

NARRATIVE: CASE EVENT DATE: 20210616
